FAERS Safety Report 20416840 (Version 2)
Quarter: 2022Q1

REPORT INFORMATION
  Report Type: Spontaneous
  Country: US (occurrence: US)
  Receive Date: 20220202
  Receipt Date: 20220211
  Transmission Date: 20220423
  Serious: Yes (Other)
  Sender: FDA-Public Use
  Company Number: US-PFIZER INC-202200164557

PATIENT
  Age: 60 Year
  Sex: Female
  Weight: 63.05 kg

DRUGS (1)
  1. PAXLOVID [Suspect]
     Active Substance: NIRMATRELVIR\RITONAVIR
     Indication: COVID-19 immunisation
     Dosage: 2 150 MG TABLETS OF NIRMATRELVIR AND 100 MG OF RITONAVIR
     Dates: start: 20220127, end: 20220128

REACTIONS (6)
  - Hypersensitivity [Unknown]
  - Urticaria [Unknown]
  - Diarrhoea [Unknown]
  - Vomiting [Unknown]
  - Pain [Unknown]
  - Ocular hyperaemia [Unknown]

NARRATIVE: CASE EVENT DATE: 20220127
